FAERS Safety Report 8403447-1 (Version None)
Quarter: 2012Q2

REPORT INFORMATION
  Report Type: 
  Country: None (occurrence: None)
  Receive Date: 20120601
  Receipt Date: 20120523
  Transmission Date: 20120825
  Serious: Yes (Hospitalization)
  Sender: FDA-Public Use
  Company Number: US-JNJFOC-20120519147

PATIENT
  Sex: Female
  Weight: 71.67 kg

DRUGS (13)
  1. CELEXA [Concomitant]
  2. IBUPROFEN (ADVIL) [Concomitant]
  3. REMICADE [Suspect]
     Route: 042
     Dates: start: 20071215
  4. MERCAPTOPURINE [Concomitant]
  5. FEOSOL [Concomitant]
  6. MESALAMINE [Concomitant]
  7. ZOFRAN [Concomitant]
  8. TRAMADOL HCL [Concomitant]
  9. PROTONIX [Concomitant]
  10. REMICADE [Suspect]
     Indication: CROHN'S DISEASE
     Route: 042
     Dates: start: 20110226
  11. HUMIRA [Concomitant]
  12. CORTIFOAM [Concomitant]
  13. VICODIN [Concomitant]

REACTIONS (1)
  - CROHN'S DISEASE [None]
